FAERS Safety Report 8198205-X (Version None)
Quarter: 2012Q1

REPORT INFORMATION
  Report Type: 
  Country: None (occurrence: None)
  Receive Date: 20120309
  Receipt Date: 20120229
  Transmission Date: 20120608
  Serious: Yes (Hospitalization)
  Sender: FDA-Public Use
  Company Number: PHHY2011DE104199

PATIENT
  Sex: Male
  Weight: 10.5 kg

DRUGS (7)
  1. GLEEVEC [Suspect]
     Dosage: 100 MG, PER DAY
     Route: 048
     Dates: start: 20111119
  2. GLEEVEC [Suspect]
     Indication: ACUTE LYMPHOCYTIC LEUKAEMIA
     Dosage: 100 MG, PER DAY
     Route: 054
  3. GLEEVEC [Suspect]
     Indication: CHROMOSOME ANALYSIS ABNORMAL
     Dosage: 100 MG, PER DAY
     Route: 048
  4. CHEMOTHERAPEUTICS [Concomitant]
     Dosage: UNK UKN, UNK
     Route: 065
  5. COTRIM [Concomitant]
     Dosage: UNK UKN, UNK
     Route: 065
  6. AMPHOTERICIN B [Concomitant]
     Dosage: UNK UKN, UNK
     Route: 065
  7. PANTOPRAZOLE [Concomitant]
     Dosage: UNK UKN, UNK
     Route: 065

REACTIONS (4)
  - VOMITING [None]
  - LIPASE INCREASED [None]
  - DRUG LEVEL DECREASED [None]
  - WRONG TECHNIQUE IN DRUG USAGE PROCESS [None]
